FAERS Safety Report 9394805 (Version 2)
Quarter: 2013Q3

REPORT INFORMATION
  Report Type: Spontaneous
  Country: US (occurrence: US)
  Receive Date: 20130711
  Receipt Date: 20130729
  Transmission Date: 20140515
  Serious: Yes (Other)
  Sender: FDA-Public Use
  Company Number: US-MYLANLABS-2013S1015107

PATIENT
  Sex: Female

DRUGS (3)
  1. LORAZEPAM TABLETS, USP [Suspect]
     Indication: INSOMNIA
     Dosage: 1 OR 2 MG,  3 - 4 TIMES A DAY
     Dates: start: 201305, end: 2013
  2. LORAZEPAM TABLETS, USP [Suspect]
     Indication: ANXIETY DISORDER
     Dosage: 1 OR 2 MG,  3 - 4 TIMES A DAY
     Dates: start: 201305, end: 2013
  3. LORAZEPAM TABLETS, USP [Suspect]
     Indication: CONVULSION
     Dosage: 1 OR 2 MG,  3 - 4 TIMES A DAY
     Dates: start: 201305, end: 2013

REACTIONS (8)
  - Drug ineffective [Recovered/Resolved]
  - Convulsion [Recovered/Resolved]
  - Glaucoma [Recovered/Resolved]
  - Oedema [Recovered/Resolved]
  - Insomnia [Recovered/Resolved]
  - Anxiety [Recovered/Resolved]
  - Gastrointestinal disorder [Recovered/Resolved]
  - Abdominal distension [Recovered/Resolved]
